FAERS Safety Report 22059419 (Version 2)
Quarter: 2023Q2

REPORT INFORMATION
  Report Type: Spontaneous
  Country: US (occurrence: US)
  Receive Date: 20230303
  Receipt Date: 20230419
  Transmission Date: 20230722
  Serious: No
  Sender: FDA-Public Use
  Company Number: US-PFIZER INC-202300088039

PATIENT
  Age: 12 Year
  Sex: Male
  Weight: 64.41 kg

DRUGS (5)
  1. GENOTROPIN [Suspect]
     Active Substance: SOMATROPIN
     Indication: Growth hormone deficiency
     Dosage: 1.1MG BY INJECTION EVERY NIGHT
  2. HYDROCORTISONE [Concomitant]
     Active Substance: HYDROCORTISONE
     Dosage: 1.5 TABLETS IN THE MORNING AND 1 TABLET IN EVENING
  3. LEVOTHYROXINE [Concomitant]
     Active Substance: LEVOTHYROXINE
     Dosage: 88 UG
  4. CHOLECALCIFEROL [Concomitant]
     Active Substance: CHOLECALCIFEROL
     Dosage: 4000 IU
  5. CAROTENALL [Concomitant]
     Dosage: DIETARY SUPPLEMENT; LIKE A VITAMIN

REACTIONS (3)
  - Wrong technique in device usage process [Unknown]
  - Expired device used [Unknown]
  - Device breakage [Unknown]
